FAERS Safety Report 11517670 (Version 2)
Quarter: 2015Q4

REPORT INFORMATION
  Report Type: Spontaneous
  Country: JP (occurrence: JP)
  Receive Date: 20150917
  Receipt Date: 20151005
  Transmission Date: 20160304
  Serious: Yes (Other)
  Sender: FDA-Public Use
  Company Number: JP-PFIZER INC-2015308311

PATIENT
  Age: 89 Year
  Sex: Male

DRUGS (6)
  1. CELECOX [Suspect]
     Active Substance: CELECOXIB
     Dosage: 200 MG, 1X/DAY
     Route: 048
     Dates: start: 20150825, end: 20150904
  2. CANDESARTAN CILEXETIL. [Suspect]
     Active Substance: CANDESARTAN CILEXETIL
     Dosage: 8 MG, 1X/DAY
     Route: 048
     Dates: start: 20150827, end: 20150903
  3. CANDESARTAN CILEXETIL. [Suspect]
     Active Substance: CANDESARTAN CILEXETIL
     Dosage: 4 MG, 1X/DAY
     Route: 048
     Dates: start: 20150905, end: 20150905
  4. CELECOX [Suspect]
     Active Substance: CELECOXIB
     Indication: POST-TRAUMATIC PAIN
     Dosage: 100 MG, 1X/DAY
     Route: 048
     Dates: start: 20150824, end: 20150824
  5. CANDESARTAN CILEXETIL. [Suspect]
     Active Substance: CANDESARTAN CILEXETIL
     Dosage: 12 MG, 1X/DAY
     Route: 048
     Dates: start: 20150904, end: 20150904
  6. LANSOPRAZOLE. [Concomitant]
     Active Substance: LANSOPRAZOLE
     Dosage: UNK
     Dates: start: 20150827, end: 20150905

REACTIONS (3)
  - Generalised erythema [Recovered/Resolved]
  - Pyrexia [Recovered/Resolved]
  - Intentional product use issue [Unknown]

NARRATIVE: CASE EVENT DATE: 20150824
